FAERS Safety Report 9422909 (Version 1)
Quarter: 2013Q3

REPORT INFORMATION
  Report Type: Report from Study
  Country: US (occurrence: US)
  Receive Date: 20130726
  Receipt Date: 20130726
  Transmission Date: 20140515
  Serious: Yes (Hospitalization, Other)
  Sender: FDA-Public Use
  Company Number: US-JNJFOC-20130711949

PATIENT
  Age: 58 Year
  Sex: Female
  Weight: 97.07 kg

DRUGS (17)
  1. REMICADE [Suspect]
     Indication: PSORIASIS
     Route: 042
     Dates: start: 201208, end: 20121127
  2. REMICADE [Suspect]
     Indication: PSORIATIC ARTHROPATHY
     Route: 042
     Dates: start: 201208, end: 20121127
  3. POTASSIUM [Suspect]
     Indication: PRODUCT USED FOR UNKNOWN INDICATION
     Route: 048
     Dates: end: 20121127
  4. ATORVASTATIN [Concomitant]
     Indication: BLOOD PRESSURE
     Route: 048
  5. CARVEDILOL [Concomitant]
     Indication: BLOOD CHOLESTEROL
     Route: 048
  6. LEVOTHYROXINE [Concomitant]
     Indication: THYROID HORMONE REPLACEMENT THERAPY
     Route: 048
  7. MELATONIN [Concomitant]
     Indication: SLEEP DISORDER
     Dosage: 10MG/TABLET
     Route: 048
  8. PAROXETINE [Concomitant]
     Indication: DEPRESSION
     Route: 048
  9. RENVELA [Concomitant]
     Indication: DIALYSIS
     Dosage: 2400MG/TABLET
     Route: 048
  10. VITAMIN D [Concomitant]
     Indication: VITAMIN D DEFICIENCY
     Dosage: 50000 UNITS ONCE A WEEK
     Route: 048
  11. HYDROCODONE [Concomitant]
     Route: 048
  12. LASIX [Concomitant]
     Route: 048
  13. ALLOPURINOL [Concomitant]
     Indication: GOUT
     Route: 065
  14. DIALVIT [Concomitant]
     Indication: VITAMIN SUPPLEMENTATION
     Route: 065
  15. CALCIUM [Concomitant]
     Route: 048
  16. CEFALEXIN [Concomitant]
     Indication: INFECTION PROPHYLAXIS
     Route: 048
  17. SULFAMETHOXAZOLE [Concomitant]
     Indication: INFECTION PROPHYLAXIS
     Route: 048

REACTIONS (4)
  - Renal disorder [Unknown]
  - Blood potassium increased [Recovered/Resolved]
  - Fluid retention [Not Recovered/Not Resolved]
  - Dyspnoea [Not Recovered/Not Resolved]
